FAERS Safety Report 20618094 (Version 1)
Quarter: 2022Q1

REPORT INFORMATION
  Report Type: Spontaneous
  Country: US (occurrence: None)
  Receive Date: 20220321
  Receipt Date: 20220321
  Transmission Date: 20220423
  Serious: Yes (Other)
  Sender: FDA-Public Use
  Company Number: None

PATIENT
  Age: 69 Year
  Sex: Female
  Weight: 75.15 kg

DRUGS (12)
  1. RANOLAZINE [Suspect]
     Active Substance: RANOLAZINE
     Indication: Angina pectoris
     Dosage: OTHER QUANTITY : 1 TABLET(S);?FREQUENCY : TWICE A DAY;?
     Route: 048
     Dates: start: 20220219, end: 20220315
  2. RANOLAZINE [Suspect]
     Active Substance: RANOLAZINE
     Indication: Dyspnoea
  3. CALCIUM\CHOLECALCIFEROL [Concomitant]
     Active Substance: CALCIUM\CHOLECALCIFEROL
  4. GLUCOSAMINE [Concomitant]
  5. CHONDROITIN [Concomitant]
     Active Substance: CHONDROITIN
  6. FISH OIL [Concomitant]
     Active Substance: FISH OIL
  7. FLAXSEED [Concomitant]
     Active Substance: FLAX SEED
  8. HERBALS\TURMERIC [Concomitant]
     Active Substance: HERBALS\TURMERIC
  9. one a day womans supplement [Concomitant]
  10. B complex multi [Concomitant]
  11. 81mg baby asprin [Concomitant]
  12. MINERALS\VITAMINS [Concomitant]
     Active Substance: MINERALS\VITAMINS

REACTIONS (7)
  - Swelling [None]
  - Rash [None]
  - Tinnitus [None]
  - Dyspnoea [None]
  - Chills [None]
  - Paraesthesia [None]
  - Pruritus [None]

NARRATIVE: CASE EVENT DATE: 20220313
